FAERS Safety Report 23758590 (Version 1)
Quarter: 2024Q2

REPORT INFORMATION
  Report Type: Spontaneous
  Country: US (occurrence: None)
  Receive Date: 20240418
  Receipt Date: 20240418
  Transmission Date: 20240716
  Serious: No
  Sender: FDA-Public Use
  Company Number: US-ROCHE-3372468

PATIENT
  Sex: Female
  Weight: 50 kg

DRUGS (1)
  1. AVASTIN [Suspect]
     Active Substance: BEVACIZUMAB
     Indication: Ovarian cancer
     Dosage: 400MG OF AVASTIN (~7.5/KG),
     Route: 065
     Dates: start: 202208

REACTIONS (2)
  - Blood pressure increased [Unknown]
  - Product prescribing error [Unknown]
